FAERS Safety Report 4892687-4 (Version None)
Quarter: 2006Q1

REPORT INFORMATION
  Report Type: 
  Country: None (occurrence: None)
  Receive Date: 20060125
  Receipt Date: 20060125
  Transmission Date: 20060701
  Serious: Yes (Hospitalization)
  Sender: FDA-Public Use
  Company Number: None

PATIENT
  Sex: Female

DRUGS (4)
  1. TEMAZEPAM [Suspect]
     Indication: INTENTIONAL OVERDOSE
     Dates: start: 20050622
  2. TEMAZEPAM [Suspect]
     Indication: SUICIDE ATTEMPT
     Dates: start: 20050622
  3. RISPERIDONE [Suspect]
     Indication: INTENTIONAL OVERDOSE
     Dates: start: 20050622
  4. RISPERIDONE [Suspect]
     Indication: SUICIDE ATTEMPT
     Dates: start: 20050622

REACTIONS (7)
  - BLOOD PRESSURE SYSTOLIC DECREASED [None]
  - ELECTROCARDIOGRAM ST SEGMENT DEPRESSION [None]
  - HYPOTENSION [None]
  - ISCHAEMIA [None]
  - LETHARGY [None]
  - OVERDOSE [None]
  - SELF INJURIOUS BEHAVIOUR [None]
